FAERS Safety Report 4553563-X (Version None)
Quarter: 2004Q4

REPORT INFORMATION
  Report Type: 
  Country: None (occurrence: None)
  Receive Date: 20041227
  Receipt Date: 20041001
  Transmission Date: 20050328
  Serious: No
  Sender: FDA-Public Use
  Company Number: 04P-163-0272023-00

PATIENT
  Age: 53 Year
  Sex: Female
  Weight: 74.8435 kg

DRUGS (11)
  1. HUMIRA [Suspect]
     Indication: RHEUMATOID ARTHRITIS
     Dosage: SEE IMAGE
     Route: 058
     Dates: start: 20040601, end: 20040801
  2. HUMIRA [Suspect]
     Indication: RHEUMATOID ARTHRITIS
     Dosage: SEE IMAGE
     Route: 058
     Dates: start: 20040801
  3. DYAZIDE [Concomitant]
  4. METHOTREXATE [Concomitant]
  5. FOLIC ACID [Concomitant]
  6. CALCIUM GLUCONATE [Concomitant]
  7. LEVOTHYROXINE SODIUM [Concomitant]
  8. CIMETIDINE [Concomitant]
  9. SYNTEST-HS [Concomitant]
  10. VICODIN [Concomitant]
  11. PREDNISONE [Concomitant]

REACTIONS (4)
  - FUNGAL INFECTION [None]
  - HAEMATOCRIT DECREASED [None]
  - INJECTION SITE PRURITUS [None]
  - RASH [None]
